FAERS Safety Report 22111969 (Version 1)
Quarter: 2023Q1

REPORT INFORMATION
  Report Type: Spontaneous
  Country: FR (occurrence: FR)
  Receive Date: 20230318
  Receipt Date: 20230318
  Transmission Date: 20230418
  Serious: Yes (Hospitalization, Other)
  Sender: FDA-Public Use
  Company Number: FR-AFSSAPS-TO2023000341

PATIENT
  Age: 81 Year
  Sex: Female
  Weight: 61.5 kg

DRUGS (11)
  1. MEROPENEM [Suspect]
     Active Substance: MEROPENEM
     Indication: Sepsis
     Dosage: 6 GRAM,2D/8HEURES SUITE ROOM/24H
     Route: 042
     Dates: start: 20221210
  2. CASPOFUNGIN [Suspect]
     Active Substance: CASPOFUNGIN
     Indication: Sepsis
     Dosage: 70 MILLIGRAM
     Route: 042
     Dates: start: 20221210, end: 20221220
  3. DAPTOMYCIN [Suspect]
     Active Substance: DAPTOMYCIN
     Indication: Sepsis
     Dosage: 700 MILLIGRAM, ONCE A DAY
     Route: 042
  4. MINOCYCLINE [Suspect]
     Active Substance: MINOCYCLINE HYDROCHLORIDE
     Indication: Sepsis
     Dosage: 200 MILLIGRAM, ONCE A DAY,100 MG, 1-0-1 CP/J
     Route: 048
     Dates: start: 20221118, end: 20221210
  5. TEICOPLANIN [Suspect]
     Active Substance: TEICOPLANIN
     Indication: Sepsis
     Dosage: UNK
     Route: 042
     Dates: start: 20230202, end: 20230215
  6. RIFAMPIN [Suspect]
     Active Substance: RIFAMPIN
     Indication: Staphylococcal infection
     Dosage: 900 MILLIGRAM,300 MG, 3/JOUR
     Route: 048
     Dates: start: 20221118, end: 20221210
  7. PANTOPRAZOLE [Concomitant]
     Active Substance: PANTOPRAZOLE
     Indication: Product used for unknown indication
     Dosage: UNK
     Route: 065
  8. SOTALOL [Concomitant]
     Active Substance: SOTALOL
     Indication: Product used for unknown indication
     Dosage: UNK
     Route: 065
  9. XARELTO [Concomitant]
     Active Substance: RIVAROXABAN
     Indication: Product used for unknown indication
     Dosage: UNK
     Route: 065
  10. RILMENIDINE [Concomitant]
     Active Substance: RILMENIDINE
     Indication: Product used for unknown indication
     Dosage: UNK
     Route: 065
  11. LEVOTHYROXINE [Concomitant]
     Active Substance: LEVOTHYROXINE
     Indication: Product used for unknown indication
     Dosage: UNK
     Route: 065

REACTIONS (3)
  - Hepatic cytolysis [Recovered/Resolved]
  - Jaundice cholestatic [Recovering/Resolving]
  - Rash [Recovered/Resolved]

NARRATIVE: CASE EVENT DATE: 20221210
